FAERS Safety Report 11758717 (Version 1)
Quarter: 2015Q4

REPORT INFORMATION
  Report Type: Spontaneous
  Country: US (occurrence: US)
  Receive Date: 20151120
  Receipt Date: 20151120
  Transmission Date: 20160304
  Serious: Yes (Other)
  Sender: FDA-Public Use
  Company Number: US-009507513-1511USA007992

PATIENT
  Sex: Male
  Weight: 100 kg

DRUGS (1)
  1. TEMOZOLOMIDE. [Suspect]
     Active Substance: TEMOZOLOMIDE
     Indication: GLIOBLASTOMA MULTIFORME
     Dosage: UNK
     Route: 048
     Dates: start: 2015, end: 2015

REACTIONS (12)
  - Polyp [Unknown]
  - Optic nerve injury [Unknown]
  - Cognitive disorder [Recovered/Resolved]
  - Disturbance in social behaviour [Recovered/Resolved]
  - Hand-eye coordination impaired [Recovered/Resolved]
  - Drug ineffective [Unknown]
  - Hair disorder [Unknown]
  - Eye discharge [Unknown]
  - Blindness [Recovered/Resolved]
  - Disorientation [Recovered/Resolved]
  - Weight decreased [Recovered/Resolved]
  - Memory impairment [Recovered/Resolved]

NARRATIVE: CASE EVENT DATE: 2015
